FAERS Safety Report 12748434 (Version 1)
Quarter: 2016Q3

REPORT INFORMATION
  Report Type: Spontaneous
  Country: US (occurrence: US)
  Receive Date: 20160915
  Receipt Date: 20160915
  Transmission Date: 20161109
  Serious: Yes (Hospitalization, Other)
  Sender: FDA-Public Use
  Company Number: US-009507513-1110USA01311

PATIENT
  Age: 39 Year
  Sex: Female
  Weight: 72.56 kg

DRUGS (2)
  1. FOSAMAX [Suspect]
     Active Substance: ALENDRONATE SODIUM
     Indication: PRODUCT USED FOR UNKNOWN INDICATION
     Dosage: UNK, UNKNOWN
     Route: 048
     Dates: end: 200911
  2. FOSAMAX [Suspect]
     Active Substance: ALENDRONATE SODIUM
     Indication: PRODUCT USED FOR UNKNOWN INDICATION
     Dosage: UNK UNK, UNKNOWN
     Route: 048

REACTIONS (21)
  - Foot fracture [Unknown]
  - Stress fracture [Unknown]
  - Headache [Unknown]
  - Anxiety [Unknown]
  - Fracture nonunion [Unknown]
  - Hysterectomy [Unknown]
  - Femur fracture [Unknown]
  - Coronary artery disease [Unknown]
  - Sinus disorder [Unknown]
  - Dyspnoea [Unknown]
  - Angiopathy [Unknown]
  - Hypothyroidism [Unknown]
  - Femur fracture [Recovering/Resolving]
  - Systemic lupus erythematosus [Unknown]
  - Cervix carcinoma [Unknown]
  - Palpitations [Unknown]
  - Arthritis [Unknown]
  - Increased tendency to bruise [Unknown]
  - Femur fracture [Unknown]
  - Hyperlipidaemia [Unknown]
  - Depression [Unknown]

NARRATIVE: CASE EVENT DATE: 2005
